FAERS Safety Report 5606672-8 (Version None)
Quarter: 2008Q1

REPORT INFORMATION
  Report Type: 
  Country: None (occurrence: None)
  Receive Date: 20080129
  Receipt Date: 20080122
  Transmission Date: 20080703
  Serious: Yes (Death)
  Sender: FDA-Public Use
  Company Number: US-KINGPHARMUSA00001-K200800096

PATIENT

DRUGS (6)
  1. SKELAXIN [Suspect]
     Route: 048
  2. LAMOTRIGINE [Suspect]
     Route: 048
  3. DONEPEZIL HCL [Suspect]
     Route: 048
  4. TACRINE [Suspect]
     Route: 048
  5. AMANTADINE HCL [Suspect]
     Route: 048
  6. CLONAZEPAM [Suspect]
     Route: 048

REACTIONS (1)
  - DEATH [None]
